FAERS Safety Report 4414239-2 (Version None)
Quarter: 2004Q3

REPORT INFORMATION
  Report Type: 
  Country: None (occurrence: None)
  Receive Date: 20040728
  Receipt Date: 20040721
  Transmission Date: 20050211
  Serious: Yes (Hospitalization)
  Sender: FDA-Public Use
  Company Number: CAR-2004-008

PATIENT
  Age: 52 Year
  Sex: Male

DRUGS (2)
  1. SUCRALFATE [Suspect]
     Dosage: 3 G
     Route: 048
     Dates: start: 20040401
  2. OMEPRAZOLE [Suspect]
     Indication: GASTRIC ULCER
     Dosage: 20 MG
     Route: 048
     Dates: start: 20020401

REACTIONS (9)
  - BLOOD CALCIUM INCREASED [None]
  - BLOOD PHOSPHORUS DECREASED [None]
  - BLOOD SODIUM DECREASED [None]
  - GENERAL PHYSICAL HEALTH DETERIORATION [None]
  - HYPOKALAEMIA [None]
  - METABOLIC ALKALOSIS [None]
  - RENAL FUNCTION TEST ABNORMAL [None]
  - URINE CALCIUM DECREASED [None]
  - VOMITING [None]
